FAERS Safety Report 11966925 (Version 3)
Quarter: 2016Q1

REPORT INFORMATION
  Report Type: Spontaneous
  Country: JP (occurrence: JP)
  Receive Date: 20160127
  Receipt Date: 20160222
  Transmission Date: 20160526
  Serious: Yes (Death, Life-Threatening, Hospitalization, Other)
  Sender: FDA-Public Use
  Company Number: JP-JNJFOC-20160120816

PATIENT
  Age: 86 Year
  Sex: Male
  Weight: 43 kg

DRUGS (9)
  1. BLOPRESS [Suspect]
     Active Substance: CANDESARTAN CILEXETIL
     Indication: HYPERTENSION
     Route: 048
     Dates: start: 20140620
  2. PANALDINE [Concomitant]
     Active Substance: TICLOPIDINE HYDROCHLORIDE
     Route: 048
     Dates: start: 20140528, end: 20140620
  3. MEXITIL [Suspect]
     Active Substance: MEXILETINE HYDROCHLORIDE
     Indication: PRODUCT USED FOR UNKNOWN INDICATION
     Route: 048
     Dates: start: 20121009
  4. KAMAG G [Suspect]
     Active Substance: MAGNESIUM OXIDE
     Indication: CONSTIPATION
     Route: 048
     Dates: start: 20150405
  5. BENFOTIAMINE W/CYANOCOBALAMIN/PYRIDOXINE HCL [Suspect]
     Active Substance: BENFOTIAMINE\CYANOCOBALAMIN\PYRIDOXINE HYDROCHLORIDE
     Indication: PRODUCT USED FOR UNKNOWN INDICATION
     Route: 065
  6. BAYASPIRIN [Concomitant]
     Active Substance: ASPIRIN
     Indication: MONOPLEGIA
     Route: 048
     Dates: start: 20080715, end: 20140528
  7. XARELTO [Suspect]
     Active Substance: RIVAROXABAN
     Indication: THROMBOSIS PROPHYLAXIS
     Route: 048
     Dates: start: 20130628, end: 20150528
  8. XARELTO [Suspect]
     Active Substance: RIVAROXABAN
     Indication: THROMBOSIS PROPHYLAXIS
     Route: 048
     Dates: start: 20140620, end: 20151128
  9. URSO [Suspect]
     Active Substance: URSODIOL
     Indication: PRODUCT USED FOR UNKNOWN INDICATION
     Route: 048

REACTIONS (9)
  - Prostate cancer [Unknown]
  - Cerebral thrombosis [Recovering/Resolving]
  - Cerebral infarction [Fatal]
  - Angina unstable [Recovered/Resolved]
  - Quadriplegia [Recovering/Resolving]
  - Benign prostatic hyperplasia [Unknown]
  - Cerebral infarction [Recovering/Resolving]
  - Cardiovascular disorder [Recovering/Resolving]
  - Cardiac failure acute [Recovered/Resolved]

NARRATIVE: CASE EVENT DATE: 20140528
